FAERS Safety Report 6272914-1 (Version None)
Quarter: 2009Q3

REPORT INFORMATION
  Report Type: 
  Country: None (occurrence: None)
  Receive Date: 20090717
  Receipt Date: 20090707
  Transmission Date: 20100115
  Serious: Yes (Hospitalization)
  Sender: FDA-Public Use
  Company Number: FR-PFIZER INC-2009236727

PATIENT
  Age: 77 Year

DRUGS (6)
  1. LYRICA [Suspect]
     Dosage: 75 MG, 1X/DAY
     Route: 048
     Dates: start: 20080101
  2. STALEVO 100 [Suspect]
     Dosage: 1 DF, 5X/DAY
     Route: 048
     Dates: start: 20090303
  3. MODOPAR [Suspect]
     Dosage: 1 DF, 5X/DAY
     Route: 048
     Dates: start: 20010101
  4. MODOPAR [Suspect]
     Dosage: 1 DF, 2X/DAY
     Route: 048
     Dates: start: 20010101
  5. MODOPAR [Suspect]
     Dosage: 1 DF, 2X/DAY
     Dates: start: 20010101
  6. SIFROL [Concomitant]
     Dosage: 0.7 MG, 3X/DAY
     Route: 048
     Dates: start: 20080101

REACTIONS (1)
  - SUPRAVENTRICULAR TACHYCARDIA [None]
